FAERS Safety Report 24828476 (Version 2)
Quarter: 2025Q1

REPORT INFORMATION
  Report Type: Spontaneous
  Country: US (occurrence: US)
  Receive Date: 20250110
  Receipt Date: 20250225
  Transmission Date: 20250409
  Serious: Yes (Other)
  Sender: NOVO NORDISK
  Company Number: US-NOVOPROD-1331379

PATIENT
  Age: 60 Year
  Sex: Female

DRUGS (2)
  1. LEVEMIR [Suspect]
     Active Substance: INSULIN DETEMIR
     Indication: Type 1 diabetes mellitus
     Route: 058
     Dates: start: 20230512, end: 2024
  2. LEVEMIR [Suspect]
     Active Substance: INSULIN DETEMIR
     Route: 058
     Dates: end: 2024

REACTIONS (4)
  - Deafness [Not Recovered/Not Resolved]
  - Fall [Unknown]
  - Concussion [Unknown]
  - Hypoaesthesia [Unknown]

NARRATIVE: CASE EVENT DATE: 20240601
